FAERS Safety Report 15593882 (Version 1)
Quarter: 2018Q4

REPORT INFORMATION
  Report Type: Spontaneous
  Country: US (occurrence: US)
  Receive Date: 20181102
  Receipt Date: 20181102
  Transmission Date: 20190205
  Serious: Yes (Life-Threatening, Hospitalization)
  Sender: FDA-Public Use
  Company Number: None

PATIENT
  Age: 64 Year
  Sex: Male

DRUGS (1)
  1. RIVAROXABAN [Suspect]
     Active Substance: RIVAROXABAN
     Route: 048
     Dates: start: 20181023, end: 20181029

REACTIONS (4)
  - Gastrointestinal haemorrhage [None]
  - Gastrointestinal angiectasia [None]
  - Gastritis [None]
  - Duodenitis [None]

NARRATIVE: CASE EVENT DATE: 20181029
